FAERS Safety Report 24555587 (Version 1)
Quarter: 2024Q4

REPORT INFORMATION
  Report Type: Spontaneous
  Country: US (occurrence: US)
  Receive Date: 20241028
  Receipt Date: 20241028
  Transmission Date: 20250115
  Serious: No
  Sender: TEVA
  Company Number: US-TEVA-VS-3251990

PATIENT
  Age: 30 Year
  Sex: Female
  Weight: 94.35 kg

DRUGS (3)
  1. AJOVY [Suspect]
     Active Substance: FREMANEZUMAB-VFRM
     Indication: Migraine
     Dosage: 225/1.5 MG/ML
     Route: 065
     Dates: start: 20240802
  2. BENADRYL [Concomitant]
     Active Substance: DIPHENHYDRAMINE HYDROCHLORIDE
     Indication: Pruritus
  3. IBUPROFEN [Concomitant]
     Active Substance: IBUPROFEN
     Indication: Contusion

REACTIONS (4)
  - Pruritus [Not Recovered/Not Resolved]
  - Blood glucose increased [Recovered/Resolved]
  - Inappropriate schedule of product administration [Unknown]
  - Contusion [Not Recovered/Not Resolved]

NARRATIVE: CASE EVENT DATE: 20240901
